FAERS Safety Report 19706499 (Version 1)
Quarter: 2021Q3

REPORT INFORMATION
  Report Type: Spontaneous
  Country: US (occurrence: US)
  Receive Date: 20210817
  Receipt Date: 20210817
  Transmission Date: 20211014
  Serious: Yes (Other)
  Sender: FDA-Public Use
  Company Number: US-GLAXOSMITHKLINE-US2021GSK172094

PATIENT
  Sex: Male

DRUGS (2)
  1. RANITIDINE. [Suspect]
     Active Substance: RANITIDINE
     Indication: DYSPEPSIA
     Dosage: UNK, AS NEEDED
     Route: 065
     Dates: start: 201610, end: 201803
  2. RANITIDINE. [Suspect]
     Active Substance: RANITIDINE
     Indication: DYSPEPSIA
     Dosage: UNK, AS NEEDED
     Route: 065
     Dates: start: 201610, end: 201803

REACTIONS (1)
  - Bladder cancer [Unknown]
